FAERS Safety Report 7311025-0 (Version None)
Quarter: 2011Q1

REPORT INFORMATION
  Report Type: 
  Country: None (occurrence: None)
  Receive Date: 20110224
  Receipt Date: 20110223
  Transmission Date: 20110831
  Serious: Yes (Death)
  Sender: FDA-Public Use
  Company Number: PHHY2011US00568

PATIENT
  Sex: Female

DRUGS (1)
  1. EXJADE [Suspect]
     Indication: CHRONIC MYELOID LEUKAEMIA
     Dosage: 500 MG, UNK
     Route: 048
     Dates: start: 20070314, end: 20070801

REACTIONS (4)
  - SEPSIS [None]
  - HAEMORRHAGE [None]
  - PANCYTOPENIA [None]
  - NEOPLASM MALIGNANT [None]
